FAERS Safety Report 6385699-5 (Version None)
Quarter: 2009Q4

REPORT INFORMATION
  Report Type: 
  Country: None (occurrence: None)
  Receive Date: 20091002
  Receipt Date: 20081020
  Transmission Date: 20100525
  Serious: No
  Sender: FDA-Public Use
  Company Number: US-ASTRAZENECA-2008UW23413

PATIENT
  Sex: Female

DRUGS (1)
  1. ARIMIDEX [Suspect]
     Dosage: UNKNOWN
     Route: 048
     Dates: start: 20050101

REACTIONS (1)
  - LIMB INJURY [None]
